FAERS Safety Report 20134536 (Version 1)
Quarter: 2021Q4

REPORT INFORMATION
  Report Type: Spontaneous
  Country: US (occurrence: US)
  Receive Date: 20211201
  Receipt Date: 20211201
  Transmission Date: 20220303
  Serious: Yes (Other)
  Sender: FDA-Public Use
  Company Number: US-NOVARTISPH-NVSC2021US271365

PATIENT
  Age: 23 Year
  Sex: Male

DRUGS (2)
  1. TRAMETINIB [Suspect]
     Active Substance: TRAMETINIB
     Indication: Neurofibrosarcoma
     Dosage: UNK
     Route: 065
  2. DABRAFENIB [Suspect]
     Active Substance: DABRAFENIB
     Indication: Neurofibrosarcoma
     Dosage: UNK
     Route: 065

REACTIONS (3)
  - Neurofibrosarcoma [Unknown]
  - Drug intolerance [Unknown]
  - Product use in unapproved indication [Unknown]
